FAERS Safety Report 16662298 (Version 1)
Quarter: 2019Q3

REPORT INFORMATION
  Report Type: Spontaneous
  Country: US (occurrence: US)
  Receive Date: 20190802
  Receipt Date: 20190802
  Transmission Date: 20191004
  Serious: Yes (Other)
  Sender: FDA-Public Use
  Company Number: None

PATIENT
  Age: 38 Year
  Sex: Female
  Weight: 83.01 kg

DRUGS (6)
  1. SINGULAIR [Concomitant]
     Active Substance: MONTELUKAST SODIUM
  2. PROZAC [Concomitant]
     Active Substance: FLUOXETINE HYDROCHLORIDE
  3. ALBUTEROL. [Concomitant]
     Active Substance: ALBUTEROL
  4. CLARITIN [Concomitant]
     Active Substance: LORATADINE
  5. WELLBUTRIN [Concomitant]
     Active Substance: BUPROPION HYDROCHLORIDE
  6. MIRENA [Suspect]
     Active Substance: LEVONORGESTREL
     Dates: start: 20131120, end: 20190617

REACTIONS (6)
  - Suicidal ideation [None]
  - Mental disorder [None]
  - Vaginal haemorrhage [None]
  - Loss of libido [None]
  - Anaemia [None]
  - Headache [None]

NARRATIVE: CASE EVENT DATE: 20171201
